FAERS Safety Report 5106934-7 (Version None)
Quarter: 2006Q3

REPORT INFORMATION
  Report Type: 
  Country: None (occurrence: None)
  Receive Date: 20060913
  Receipt Date: 20060830
  Transmission Date: 20061208
  Serious: Yes (Other)
  Sender: FDA-Public Use
  Company Number: 229186

PATIENT
  Age: 36 Year
  Sex: Female

DRUGS (4)
  1. AVASTIN [Suspect]
     Indication: BREAST CANCER METASTATIC
     Dates: start: 20060201
  2. HERCEPTIN [Suspect]
     Indication: BREAST CANCER METASTATIC
     Dates: start: 20060201
  3. TAXOTERE [Concomitant]
  4. DEXAMETHASONE TAB [Concomitant]

REACTIONS (10)
  - ASCITES [None]
  - DACRYOSTENOSIS ACQUIRED [None]
  - EXERCISE TOLERANCE DECREASED [None]
  - FLUID RETENTION [None]
  - LACTIC ACIDOSIS [None]
  - MUSCULOSKELETAL DISORDER [None]
  - PAIN [None]
  - PLEURAL EFFUSION [None]
  - PULMONARY EMBOLISM [None]
  - THROMBOSIS [None]
